FAERS Safety Report 18016376 (Version 1)
Quarter: 2020Q3

REPORT INFORMATION
  Report Type: Spontaneous
  Country: US (occurrence: US)
  Receive Date: 20200714
  Receipt Date: 20200714
  Transmission Date: 20201103
  Serious: No
  Sender: FDA-Public Use
  Company Number: US-TEVA-2020-US-1799588

PATIENT
  Sex: Male

DRUGS (1)
  1. CLONAZEPAM TEVA [Suspect]
     Active Substance: CLONAZEPAM
     Dosage: 1.5 MILLIGRAM DAILY;
     Route: 065

REACTIONS (5)
  - Tremor [Unknown]
  - Feeling jittery [Unknown]
  - Product substitution issue [Unknown]
  - Agitation [Unknown]
  - Diarrhoea [Unknown]
